FAERS Safety Report 7817898-7 (Version None)
Quarter: 2011Q4

REPORT INFORMATION
  Report Type: 
  Country: None (occurrence: None)
  Receive Date: 20111017
  Receipt Date: 20111005
  Transmission Date: 20120403
  Serious: Yes (Other)
  Sender: FDA-Public Use
  Company Number: PHEH2011US06040

PATIENT
  Sex: Male

DRUGS (17)
  1. DIOVAN [Suspect]
  2. ASPIRIN [Concomitant]
  3. VALTURNA [Suspect]
  4. ANTIHYPERTENSIVES [Suspect]
     Indication: BLOOD PRESSURE
     Dosage: 1 DF, UNK
  5. CLONAZEPAM [Concomitant]
     Indication: ANXIETY
  6. ANALGESICS [Concomitant]
     Indication: BACK PAIN
  7. SOMA [Concomitant]
  8. FENTANYL [Concomitant]
     Indication: BACK PAIN
  9. CARISOPRODOL [Concomitant]
  10. CALCIUM CARBONATE [Concomitant]
  11. TEKTURNA [Suspect]
  12. SYNTHROID [Concomitant]
     Indication: THYROID DISORDER
  13. CYMBALTA [Concomitant]
     Indication: ANXIETY
  14. PRAVASTATIN SODIUM [Concomitant]
     Indication: BLOOD CHOLESTEROL
  15. LISINOPRIL [Suspect]
  16. HYDROCODONE BITARTRATE [Concomitant]
     Indication: BACK PAIN
  17. FISH OIL [Concomitant]

REACTIONS (7)
  - HAEMORRHAGE [None]
  - HEAD INJURY [None]
  - BLOOD PRESSURE FLUCTUATION [None]
  - LOSS OF CONSCIOUSNESS [None]
  - ROAD TRAFFIC ACCIDENT [None]
  - VERTIGO [None]
  - DRUG INEFFECTIVE [None]
